FAERS Safety Report 21269432 (Version 1)
Quarter: 2022Q3

REPORT INFORMATION
  Report Type: Spontaneous
  Country: US (occurrence: None)
  Receive Date: 20220829
  Receipt Date: 20220829
  Transmission Date: 20221026
  Serious: Yes (Other)
  Sender: FDA-Public Use
  Company Number: None

PATIENT
  Age: 75 Year
  Sex: Female
  Weight: 62.1 kg

DRUGS (11)
  1. ESTRING [Suspect]
     Active Substance: ESTRADIOL
     Indication: Preoperative care
     Dosage: OTHER QUANTITY : 1 VAGINAL INSERTION;?OTHER FREQUENCY : 0NGOING;?
     Route: 067
     Dates: start: 20210506, end: 20210507
  2. ATORVASTATIN [Concomitant]
     Active Substance: ATORVASTATIN
  3. ALPRAZOLAM [Concomitant]
     Active Substance: ALPRAZOLAM
  4. Cephalexin 500mg x2 for dental visits [Concomitant]
  5. Tylenol Arthritis (4 daily) [Concomitant]
  6. ZYRTEC [Concomitant]
     Active Substance: CETIRIZINE HYDROCHLORIDE
  7. ASPIRIN [Concomitant]
     Active Substance: ASPIRIN
  8. probiotic capsule [Concomitant]
  9. Nexium 20mg [Concomitant]
  10. MELATONIN [Concomitant]
     Active Substance: MELATONIN
  11. NASACORT [Concomitant]
     Active Substance: TRIAMCINOLONE ACETONIDE

REACTIONS (4)
  - Dysuria [None]
  - Vulvovaginal discomfort [None]
  - Defaecation disorder [None]
  - Device physical property issue [None]

NARRATIVE: CASE EVENT DATE: 20210507
